FAERS Safety Report 20389551 (Version 1)
Quarter: 2022Q1

REPORT INFORMATION
  Report Type: Spontaneous
  Country: US (occurrence: None)
  Receive Date: 20220128
  Receipt Date: 20220128
  Transmission Date: 20220423
  Serious: Yes (Hospitalization)
  Sender: FDA-Public Use
  Company Number: US-ROCHE-3008308

PATIENT
  Sex: Female

DRUGS (3)
  1. ROZLYTREK [Suspect]
     Active Substance: ENTRECTINIB
     Indication: Lung neoplasm malignant
     Dosage: TAKE ONE TABLET BY MOUTH DAILY
     Route: 048
     Dates: start: 202112
  2. ROZLYTREK [Suspect]
     Active Substance: ENTRECTINIB
     Indication: Bronchial carcinoma
  3. ROZLYTREK [Suspect]
     Active Substance: ENTRECTINIB
     Indication: Lung neoplasm malignant

REACTIONS (2)
  - Pneumothorax [Recovered/Resolved]
  - Paraesthesia [Unknown]
